FAERS Safety Report 25915348 (Version 1)
Quarter: 2025Q4

REPORT INFORMATION
  Report Type: Spontaneous
  Country: US (occurrence: US)
  Receive Date: 20251013
  Receipt Date: 20251013
  Transmission Date: 20260118
  Serious: No
  Sender: ANI
  Company Number: US-ANIPHARMA-2025-US-033257

PATIENT
  Age: 38 Year
  Sex: Female

DRUGS (5)
  1. OCREVUS [Concomitant]
     Active Substance: OCRELIZUMAB
  2. SEROQUEL [Concomitant]
     Active Substance: QUETIAPINE FUMARATE
  3. AMBIEN [Concomitant]
     Active Substance: ZOLPIDEM TARTRATE
  4. LITHIUM [Concomitant]
     Active Substance: LITHIUM
  5. CORTICOTROPIN [Suspect]
     Active Substance: CORTICOTROPIN
     Indication: Multiple sclerosis relapse
     Dosage: 80 UNITS DAILY FOR 5 DAYS
     Route: 058
     Dates: start: 202507

REACTIONS (1)
  - Drug ineffective [Unknown]
